FAERS Safety Report 7536893-9 (Version None)
Quarter: 2011Q2

REPORT INFORMATION
  Report Type: 
  Country: None (occurrence: None)
  Receive Date: 20110609
  Receipt Date: 20110531
  Transmission Date: 20111010
  Serious: Yes (Other)
  Sender: FDA-Public Use
  Company Number: US-ELI_LILLY_AND_COMPANY-US201106000282

PATIENT
  Age: 81 Year
  Sex: Female

DRUGS (5)
  1. HUMALOG [Suspect]
     Dosage: UNK, PRN
     Dates: start: 20100101
  2. HUMALOG [Suspect]
     Dosage: UNK, PRN
     Dates: start: 20060101
  3. HUMALOG [Suspect]
     Indication: TYPE 2 DIABETES MELLITUS
     Dosage: UNK, PRN
     Dates: start: 20100101
  4. OXYGEN [Concomitant]
     Dosage: UNK
  5. LEVEMIR [Concomitant]

REACTIONS (6)
  - BLINDNESS [None]
  - PRURITUS [None]
  - TREMOR [None]
  - SCOTOMA [None]
  - RASH [None]
  - BLOOD GLUCOSE DECREASED [None]
